FAERS Safety Report 9653042 (Version 1)
Quarter: 2013Q4

REPORT INFORMATION
  Report Type: Spontaneous
  Country: US (occurrence: US)
  Receive Date: 20131029
  Receipt Date: 20131029
  Transmission Date: 20140711
  Serious: No
  Sender: FDA-Public Use
  Company Number: US-BIOGENIDEC-2013BI078484

PATIENT
  Age: 51 Year
  Sex: Female

DRUGS (10)
  1. TECFIDERA [Suspect]
     Indication: MULTIPLE SCLEROSIS
     Route: 048
     Dates: start: 20130523, end: 20130529
  2. TECFIDERA [Suspect]
     Indication: MULTIPLE SCLEROSIS
     Route: 048
     Dates: start: 20130530, end: 20130719
  3. ABILIFY [Concomitant]
  4. NIACIN [Concomitant]
  5. GABAPENTIN [Concomitant]
  6. VITAMIN D [Concomitant]
  7. BACLOFEN [Concomitant]
  8. TRAZADONE [Concomitant]
  9. FLAX SEED [Concomitant]
  10. LEVOTHYROXINE [Concomitant]

REACTIONS (3)
  - Headache [Recovered/Resolved]
  - Dizziness [Recovered/Resolved]
  - Asthenia [Recovered/Resolved]
